FAERS Safety Report 17487037 (Version 1)
Quarter: 2020Q1

REPORT INFORMATION
  Report Type: Spontaneous
  Country: IT (occurrence: IT)
  Receive Date: 20200303
  Receipt Date: 20200303
  Transmission Date: 20200409
  Serious: Yes (Hospitalization)
  Sender: FDA-Public Use
  Company Number: IT-TEVA-2020-IT-1193976

PATIENT
  Age: 57 Year
  Sex: Male

DRUGS (2)
  1. GABAPENTIN TEVA PHARMA 300 MG CAPSULE RIGIDE [Suspect]
     Active Substance: GABAPENTIN
     Indication: DRUG ABUSE
     Dosage: 4 DOSAGE FORMS
     Route: 048
     Dates: start: 20200214, end: 20200214
  2. TAVOR 2,5 MG COMPRESSE [Suspect]
     Active Substance: LORAZEPAM
     Indication: DRUG ABUSE
     Dosage: 4 DOSAGE FORMS
     Route: 048
     Dates: start: 20200214, end: 20200214

REACTIONS (3)
  - Somnolence [Recovering/Resolving]
  - Suicide attempt [Recovering/Resolving]
  - Drug abuse [Recovering/Resolving]

NARRATIVE: CASE EVENT DATE: 20200214
